FAERS Safety Report 11350655 (Version 1)
Quarter: 2015Q3

REPORT INFORMATION
  Report Type: Spontaneous
  Country: US (occurrence: US)
  Receive Date: 20150807
  Receipt Date: 20150807
  Transmission Date: 20151125
  Serious: No
  Sender: FDA-Public Use
  Company Number: US-JNJFOC-20150319489

PATIENT
  Age: 76 Year
  Sex: Female
  Weight: 81.65 kg

DRUGS (1)
  1. VISINE A [Suspect]
     Active Substance: NAPHAZOLINE HYDROCHLORIDE\PHENIRAMINE MALEATE
     Indication: ACCIDENTAL EXPOSURE TO PRODUCT
     Dosage: SQUEEZED THE BOTTLE TWICE IN MY EAR, JUST ONCE
     Route: 001
     Dates: start: 20150317, end: 20150317

REACTIONS (3)
  - Incorrect route of drug administration [Unknown]
  - Throat irritation [Not Recovered/Not Resolved]
  - Accidental exposure to product [Unknown]

NARRATIVE: CASE EVENT DATE: 20150317
